FAERS Safety Report 7699044-6 (Version None)
Quarter: 2011Q3

REPORT INFORMATION
  Report Type: 
  Country: None (occurrence: None)
  Receive Date: 20110819
  Receipt Date: 20110808
  Transmission Date: 20111222
  Serious: Yes (Hospitalization, Other)
  Sender: FDA-Public Use
  Company Number: PHHY2011MX71828

PATIENT
  Sex: Female

DRUGS (1)
  1. ZOLEDRONOC ACID [Suspect]
     Indication: OSTEOPOROSIS
     Dosage: 5 MG/ 100 ML PER YEAR
     Route: 042
     Dates: start: 20110726

REACTIONS (11)
  - HYPOKINESIA [None]
  - PYREXIA [None]
  - SOMNOLENCE [None]
  - BLOOD SODIUM DECREASED [None]
  - NAUSEA [None]
  - SPEECH DISORDER [None]
  - DYSPEPSIA [None]
  - DECREASED APPETITE [None]
  - BLOOD PRESSURE INCREASED [None]
  - BOWEL MOVEMENT IRREGULARITY [None]
  - HALLUCINATION [None]
